FAERS Safety Report 14702576 (Version 1)
Quarter: 2018Q2

REPORT INFORMATION
  Report Type: Spontaneous
  Country: FR (occurrence: FR)
  Receive Date: 20180402
  Receipt Date: 20180402
  Transmission Date: 20180711
  Serious: Yes (Other)
  Sender: FDA-Public Use
  Company Number: FR-MERCK KGAA-2044855

PATIENT
  Age: 46 Year
  Sex: Female

DRUGS (4)
  1. NOVOTHYROX [Suspect]
     Active Substance: LEVOTHYROXINE SODIUM
     Dates: start: 201706
  2. NOVOTHYROX [Suspect]
     Active Substance: LEVOTHYROXINE SODIUM
     Indication: HYPOTHYROIDISM
  3. NOVOTHYROX [Suspect]
     Active Substance: LEVOTHYROXINE SODIUM
     Dates: start: 201709
  4. NOVOTHYROX [Suspect]
     Active Substance: LEVOTHYROXINE SODIUM
     Dates: start: 201710

REACTIONS (28)
  - Loss of personal independence in daily activities [None]
  - Asthenia [Not Recovered/Not Resolved]
  - Urinary incontinence [None]
  - Anxiety [None]
  - Abdominal distension [None]
  - Menstrual disorder [None]
  - Affective disorder [None]
  - Irritability [None]
  - Dysstasia [None]
  - Blood thyroid stimulating hormone increased [None]
  - Insomnia [None]
  - Blood thyroid stimulating hormone decreased [Recovered/Resolved]
  - Major depression [None]
  - Dizziness [None]
  - Myalgia [Not Recovered/Not Resolved]
  - Weight increased [None]
  - Eructation [None]
  - Flatulence [None]
  - Arthralgia [Not Recovered/Not Resolved]
  - Somnolence [None]
  - Palpitations [Not Recovered/Not Resolved]
  - Dyspnoea exertional [None]
  - Constipation [None]
  - Headache [None]
  - Dyspepsia [Not Recovered/Not Resolved]
  - Vision blurred [None]
  - Muscle spasms [None]
  - Alopecia [None]

NARRATIVE: CASE EVENT DATE: 201705
